FAERS Safety Report 9228271 (Version 1)
Quarter: 2013Q2

REPORT INFORMATION
  Report Type: Report from Study
  Country: DE (occurrence: DE)
  Receive Date: 20130412
  Receipt Date: 20130412
  Transmission Date: 20140414
  Serious: Yes (Hospitalization)
  Sender: FDA-Public Use
  Company Number: DE-ROCHE-GNE288624

PATIENT
  Age: 71 Year
  Sex: Male
  Weight: 80 kg

DRUGS (1)
  1. TENECTEPLASE [Suspect]
     Indication: PULMONARY EMBOLISM
     Route: 042

REACTIONS (2)
  - Compartment syndrome [Recovered/Resolved]
  - Muscle haemorrhage [Recovered/Resolved]
